FAERS Safety Report 6534227-X (Version None)
Quarter: 2010Q1

REPORT INFORMATION
  Report Type: 
  Country: None (occurrence: None)
  Receive Date: 20100112
  Receipt Date: 20100104
  Transmission Date: 20100710
  Serious: Yes (Other)
  Sender: FDA-Public Use
  Company Number: PHHY2009GB39020

PATIENT
  Sex: Female

DRUGS (5)
  1. TEGRETOL [Suspect]
     Indication: AFFECTIVE DISORDER
     Dosage: 400 MG/ DAILY
     Route: 048
  2. TEGRETOL [Suspect]
     Indication: BIPOLAR DISORDER
  3. VENLAFAXINE [Concomitant]
     Indication: BIPOLAR DISORDER
     Dosage: 150 MG/ DAILY
     Route: 048
  4. DIAZEPAM [Concomitant]
     Indication: BIPOLAR DISORDER
     Dosage: 5 MG/ DAILY, PRN
     Route: 048
  5. FOLIC ACID [Concomitant]
     Dosage: 5MG/ DAILY
     Route: 048

REACTIONS (3)
  - CAESAREAN SECTION [None]
  - DRUG EXPOSURE DURING PREGNANCY [None]
  - GESTATIONAL DIABETES [None]
